FAERS Safety Report 6540883-2 (Version None)
Quarter: 2010Q1

REPORT INFORMATION
  Report Type: 
  Country: None (occurrence: None)
  Receive Date: 20100118
  Receipt Date: 20100112
  Transmission Date: 20100710
  Serious: Yes (Life-Threatening, Hospitalization, Disabling, Other)
  Sender: FDA-Public Use
  Company Number: PHHY2009JP56660

PATIENT
  Sex: Female

DRUGS (11)
  1. DIOVAN [Suspect]
     Indication: HYPERTENSION
     Dosage: 80 MG DAILY
     Route: 048
     Dates: start: 20090315, end: 20090325
  2. EPOGIN [Suspect]
     Indication: NEPHROGENIC ANAEMIA
     Dosage: UNK
     Route: 058
     Dates: start: 20090315, end: 20090315
  3. PREDONINE [Concomitant]
     Dosage: 40MG TO 50MG DAILY
     Route: 048
  4. BAKTAR [Concomitant]
     Route: 048
  5. PROTECADIN [Concomitant]
     Dosage: 10MG DAILY
  6. RABEPRAZOLE SODIUM [Concomitant]
     Dosage: 10MG DAILY
     Dates: start: 20090314, end: 20090406
  7. MICONAZOLE NITRATE [Concomitant]
     Route: 048
  8. SUCRALFATE [Concomitant]
     Dosage: 3G DAILY
  9. MAGMITT [Concomitant]
     Indication: DUODENAL ULCER
     Dosage: 660 MG, UNK
     Dates: start: 20090401, end: 20090406
  10. TAKEPRON [Concomitant]
     Indication: DUODENAL ULCER
     Dosage: 60 MG, UNK
     Route: 042
     Dates: start: 20090326, end: 20090331
  11. WYTENS [Concomitant]
     Indication: HYPERTENSION
     Dosage: 4 MG, UNK
     Route: 048
     Dates: start: 20090324, end: 20090326

REACTIONS (11)
  - BLISTER [None]
  - BLOOD PRESSURE DIASTOLIC DECREASED [None]
  - EYELID OEDEMA [None]
  - HAEMOGLOBIN DECREASED [None]
  - PLATELET COUNT DECREASED [None]
  - PRURITUS [None]
  - PYREXIA [None]
  - RASH [None]
  - RENAL DISORDER [None]
  - SKIN EXFOLIATION [None]
  - TOXIC EPIDERMAL NECROLYSIS [None]
